FAERS Safety Report 11132357 (Version 1)
Quarter: 2015Q2

REPORT INFORMATION
  Report Type: Spontaneous
  Country: US (occurrence: US)
  Receive Date: 20150522
  Receipt Date: 20150522
  Transmission Date: 20150821
  Serious: Yes (Other)
  Sender: FDA-Public Use
  Company Number: US-ASTRAZENECA-2014SE29691

PATIENT
  Age: 731 Month
  Sex: Female
  Weight: 77.1 kg

DRUGS (7)
  1. BYETTA [Suspect]
     Active Substance: EXENATIDE
     Indication: TYPE 2 DIABETES MELLITUS
     Route: 065
     Dates: start: 20060308
  2. MECLIZINE HCL [Concomitant]
     Active Substance: MECLIZINE HYDROCHLORIDE
  3. BYETTA [Suspect]
     Active Substance: EXENATIDE
     Indication: TYPE 2 DIABETES MELLITUS
     Route: 065
     Dates: start: 20090813
  4. BYETTA [Suspect]
     Active Substance: EXENATIDE
     Indication: TYPE 2 DIABETES MELLITUS
     Route: 065
     Dates: start: 20060403
  5. NEURONTIN [Concomitant]
     Active Substance: GABAPENTIN
  6. PROPRANOLOL HCL [Concomitant]
     Active Substance: PROPRANOLOL HYDROCHLORIDE
     Dosage: 40 MG/5ML
  7. ESTROPIPATE. [Concomitant]
     Active Substance: ESTROPIPATE

REACTIONS (3)
  - Goitre [Unknown]
  - Thyroid neoplasm [Unknown]
  - Papillary thyroid cancer [Unknown]

NARRATIVE: CASE EVENT DATE: 200912
